FAERS Safety Report 6393325-4 (Version None)
Quarter: 2009Q4

REPORT INFORMATION
  Report Type: 
  Country: None (occurrence: None)
  Receive Date: 20091008
  Receipt Date: 20091008
  Transmission Date: 20100525
  Serious: Yes (Hospitalization)
  Sender: FDA-Public Use
  Company Number: PHHO2008DE12961

PATIENT
  Sex: Male
  Weight: 85 kg

DRUGS (4)
  1. RAMIPRIL COMP-RAM+ [Suspect]
     Indication: ESSENTIAL HYPERTENSION
     Dosage: 10 MG, QD
     Route: 048
     Dates: start: 20080804
  2. HYDROCHLOROTHIAZIDE [Suspect]
     Indication: HYPERTENSION
     Dosage: 12.5 MG, UNK
     Route: 065
     Dates: start: 20081001
  3. SIMVASTATIN [Concomitant]
  4. L-THYROXIN [Concomitant]

REACTIONS (2)
  - HERNIA REPAIR [None]
  - INGUINAL HERNIA [None]
